FAERS Safety Report 12885962 (Version 2)
Quarter: 2016Q4

REPORT INFORMATION
  Report Type: Spontaneous
  Country: JP (occurrence: JP)
  Receive Date: 20161026
  Receipt Date: 20161118
  Transmission Date: 20170207
  Serious: Yes (Life-Threatening)
  Sender: FDA-Public Use
  Company Number: JP-SA-2016SA194649

PATIENT
  Sex: Male
  Weight: 58.4 kg

DRUGS (11)
  1. AMLODIPINE [Concomitant]
     Active Substance: AMLODIPINE BESYLATE
     Indication: HYPERTENSION
     Route: 048
     Dates: end: 20161014
  2. MIYA-BM [Concomitant]
     Active Substance: CLOSTRIDIUM BUTYRICUM SPORES STRAIN M-55
     Indication: DIARRHOEA
     Route: 048
     Dates: start: 20160524, end: 20161014
  3. NATRIX [Concomitant]
     Active Substance: INDAPAMIDE
     Indication: BLOOD SODIUM DECREASED
     Route: 048
     Dates: end: 20161014
  4. NAFTOPIDIL [Concomitant]
     Active Substance: NAFTOPIDIL
     Indication: DYSURIA
     Route: 048
     Dates: start: 20150625, end: 20161014
  5. FLIVAS [Concomitant]
     Active Substance: NAFTOPIDIL
     Indication: DYSURIA
     Route: 048
     Dates: start: 20150625, end: 20161014
  6. FAMOTIDINE. [Concomitant]
     Active Substance: FAMOTIDINE
     Indication: PROPHYLAXIS AGAINST GASTROINTESTINAL ULCER
     Route: 048
     Dates: start: 20140307, end: 20161014
  7. JEVTANA [Suspect]
     Active Substance: CABAZITAXEL
     Indication: HORMONE-REFRACTORY PROSTATE CANCER
     Dosage: AT A FREQUENCY OF ONCE EVERY 4 WEEKS
     Route: 042
     Dates: start: 20160928, end: 20160928
  8. MICARDIS [Concomitant]
     Active Substance: TELMISARTAN
     Indication: HYPERTENSION
     Route: 048
     Dates: end: 20161014
  9. CELECOX [Concomitant]
     Active Substance: CELECOXIB
     Indication: MUSCULOSKELETAL PAIN
     Route: 048
     Dates: start: 20140307
  10. PREDONINE [Concomitant]
     Active Substance: PREDNISOLONE\PREDNISOLONE ACETATE\PREDNISOLONE SODIUM SUCCINATE
     Indication: PROPHYLAXIS
     Route: 048
     Dates: start: 20150430
  11. G-LASTA [Concomitant]
     Active Substance: PEGFILGRASTIM
     Route: 065
     Dates: start: 20161001, end: 20161001

REACTIONS (3)
  - Pyrexia [Recovering/Resolving]
  - Respiratory disorder [Recovering/Resolving]
  - Abscess neck [Recovering/Resolving]

NARRATIVE: CASE EVENT DATE: 20161014
